FAERS Safety Report 4850632-1 (Version None)
Quarter: 2005Q4

REPORT INFORMATION
  Report Type: 
  Country: None (occurrence: None)
  Receive Date: 20051208
  Receipt Date: 20051128
  Transmission Date: 20060501
  Serious: Yes (Death)
  Sender: FDA-Public Use
  Company Number: GXKR2005GB02055

PATIENT
  Age: 45 Year
  Sex: Female

DRUGS (6)
  1. DIAZEPAM [Suspect]
  2. CITALOPRAM HYDROBROMIDE [Suspect]
     Dosage: 20 MG
  3. INSULIN [Suspect]
  4. ZOPICLONE      (ZOPICLONE) [Suspect]
  5. ZOPICLONE (ZOPICLONE) [Concomitant]
  6. .................. [Concomitant]

REACTIONS (2)
  - COMPLETED SUICIDE [None]
  - INTENTIONAL OVERDOSE [None]
